FAERS Safety Report 6406117-4 (Version None)
Quarter: 2009Q4

REPORT INFORMATION
  Report Type: 
  Country: None (occurrence: None)
  Receive Date: 20091019
  Receipt Date: 20091012
  Transmission Date: 20100525
  Serious: Yes (Other)
  Sender: FDA-Public Use
  Company Number: US-SANOFI-SYNTHELABO-A03200904740

PATIENT
  Sex: Male
  Weight: 56.9 kg

DRUGS (6)
  1. BYSTOLIC [Concomitant]
     Indication: DRUG USE FOR UNKNOWN INDICATION
     Route: 048
     Dates: start: 20080201
  2. ASPIRIN [Concomitant]
     Indication: DRUG USE FOR UNKNOWN INDICATION
     Dosage: UNK
     Route: 048
     Dates: start: 20080201
  3. PLAVIX [Suspect]
     Indication: MYOCARDIAL INFARCTION
     Route: 048
     Dates: start: 20080201, end: 20090101
  4. PLAVIX [Suspect]
     Indication: STENT PLACEMENT
     Route: 048
     Dates: start: 20080201, end: 20090101
  5. PLAVIX [Suspect]
     Route: 048
  6. PLAVIX [Suspect]
     Route: 048

REACTIONS (3)
  - CONTUSION [None]
  - GROIN PAIN [None]
  - WEIGHT DECREASED [None]
